FAERS Safety Report 6366214-9 (Version None)
Quarter: 2009Q3

REPORT INFORMATION
  Report Type: 
  Country: None (occurrence: None)
  Receive Date: 20090915
  Receipt Date: 20090907
  Transmission Date: 20100115
  Serious: Yes (Hospitalization)
  Sender: FDA-Public Use
  Company Number: TCI2009A03498

PATIENT
  Age: 70 Year
  Sex: Male

DRUGS (16)
  1. LANSOPRAZOLE [Suspect]
     Indication: PROPHYLAXIS AGAINST GASTROINTESTINAL ULCER
     Dosage: 15 MG (15 MG, 1 IN 1 D) PER ORAL
     Route: 048
     Dates: start: 20090420
  2. LANSOPRAZOLE [Suspect]
     Indication: PROPHYLAXIS AGAINST GASTROINTESTINAL ULCER
     Dosage: 15 MG (15 MG, 1 IN 1 D) PER ORAL
     Route: 048
     Dates: start: 20080424, end: 20090419
  3. HICEE GRANULES 25% (ASCORBIC ACID) [Concomitant]
  4. LOXONIN (LOXOPROFEN SODIUM) [Concomitant]
  5. OPALMON (LIMAPROST) [Concomitant]
  6. LAMISIL [Concomitant]
  7. ADALAT CC [Concomitant]
  8. DIOVAN [Concomitant]
  9. URSO 250 [Concomitant]
  10. LAC-B GRANULAR POWDER N (LACTOBACILLUS BIFIDUS, LYOPHILIZED) [Concomitant]
  11. METHYCOBAL (MECOBALAMIN) [Concomitant]
  12. MEXITIL [Concomitant]
  13. METFORMIN HYDROCHLORIDE [Concomitant]
  14. TAMSULOSIN HCL [Concomitant]
  15. UBRETID (DISTIGMINE BROMIDE) [Concomitant]
  16. MS HOT PACK (CAMPHOR, METHYL SALICYLATE, CAPSICUM ANUUM OLEORESIN) [Concomitant]

REACTIONS (1)
  - EPIGLOTTITIS [None]
